FAERS Safety Report 23435297 (Version 1)
Quarter: 2024Q1

REPORT INFORMATION
  Report Type: Report from Study
  Country: CO (occurrence: CO)
  Receive Date: 20240123
  Receipt Date: 20240123
  Transmission Date: 20240410
  Serious: Yes (Other)
  Sender: FDA-Public Use
  Company Number: CO-ABBVIE-5593774

PATIENT
  Sex: Female
  Weight: 91 kg

DRUGS (4)
  1. SKYRIZI [Suspect]
     Active Substance: RISANKIZUMAB-RZAA
     Indication: Psoriasis
     Dosage: FORM STRENGTH: 150 MILLIGRAM
     Route: 058
     Dates: start: 20210326
  2. OLMESARTAN [Concomitant]
     Active Substance: OLMESARTAN
     Indication: Hypertension
     Dosage: 40 MILLIGRAM
  3. BETAMETHASONE [Concomitant]
     Active Substance: BETAMETHASONE\BETAMETHASONE DIPROPIONATE
     Indication: Product used for unknown indication
     Dosage: UNKNOWN
     Dates: start: 2021
  4. METFORMIN [Concomitant]
     Active Substance: METFORMIN HYDROCHLORIDE
     Indication: Diabetes mellitus
     Dosage: UNKNOWN

REACTIONS (12)
  - Visual impairment [Not Recovered/Not Resolved]
  - Exposure to contaminated air [Not Recovered/Not Resolved]
  - Productive cough [Recovering/Resolving]
  - Pain [Recovering/Resolving]
  - Influenza like illness [Recovering/Resolving]
  - Psoriasis [Not Recovered/Not Resolved]
  - Choking sensation [Not Recovered/Not Resolved]
  - Eye haemorrhage [Not Recovered/Not Resolved]
  - Influenza [Unknown]
  - Memory impairment [Not Recovered/Not Resolved]
  - Multiple injuries [Not Recovered/Not Resolved]
  - Foreign body in respiratory tract [Not Recovered/Not Resolved]

NARRATIVE: CASE EVENT DATE: 20220101
